FAERS Safety Report 12691305 (Version 1)
Quarter: 2016Q3

REPORT INFORMATION
  Report Type: Spontaneous
  Country: IT (occurrence: IT)
  Receive Date: 20160826
  Receipt Date: 20160826
  Transmission Date: 20161109
  Serious: Yes (Hospitalization)
  Sender: FDA-Public Use
  Company Number: PHHY2016IT115032

PATIENT
  Age: 53 Year
  Sex: Female

DRUGS (2)
  1. FELISON [Suspect]
     Active Substance: FLURAZEPAM MONOHYDROCHLORIDE
     Indication: PRODUCT USED FOR UNKNOWN INDICATION
     Dosage: 15 DF, ONCE/SINGLE
     Route: 048
     Dates: start: 20160412, end: 20160412
  2. CITALOPRAM [Suspect]
     Active Substance: CITALOPRAM HYDROBROMIDE
     Indication: PRODUCT USED FOR UNKNOWN INDICATION
     Dosage: 28 DF, ONCE/SINGLE
     Route: 048
     Dates: start: 20160412, end: 20160412

REACTIONS (2)
  - Drug abuse [Unknown]
  - Suicide attempt [Unknown]

NARRATIVE: CASE EVENT DATE: 20160412
